FAERS Safety Report 21138832 (Version 1)
Quarter: 2022Q3

REPORT INFORMATION
  Report Type: Report from Study
  Country: NL (occurrence: NL)
  Receive Date: 20220727
  Receipt Date: 20220727
  Transmission Date: 20221027
  Serious: Yes (Other)
  Sender: FDA-Public Use
  Company Number: NL-MYLANLABS-2022M1080696

PATIENT
  Sex: Female

DRUGS (1)
  1. GLATIRAMER ACETATE [Suspect]
     Active Substance: GLATIRAMER ACETATE
     Indication: Multiple sclerosis
     Dosage: 40 MILLIGRAM, 3XW
     Route: 058

REACTIONS (9)
  - Syncope [Unknown]
  - Throat tightness [Unknown]
  - Head discomfort [Unknown]
  - Chest discomfort [Unknown]
  - Vomiting [Unknown]
  - Palpitations [Unknown]
  - Hyperhidrosis [Unknown]
  - Chills [Unknown]
  - Asthenia [Unknown]
